FAERS Safety Report 7915292 (Version 4)
Quarter: 2012Q4

REPORT INFORMATION
  Report Type: Report from Study
  Country: JP (occurrence: MY)
  Receive Date: 20110426
  Receipt Date: 20121231
  Transmission Date: 20130627
  Serious: Yes (Hospitalization)
  Sender: FDA-Public Use
  Company Number: MY-BRISTOL-MYERS SQUIBB COMPANY-15690175

PATIENT
  Age: 29 Year
  Sex: Male

DRUGS (3)
  1. ABILIFY TABS [Suspect]
     Indication: SCHIZOPHRENIA
     Dosage: 6mg 8-22Mar11(15D)
12mg 23Mar-7Apr11(16D)
18mg 8-12Apr11(5D)
     Route: 048
     Dates: start: 20110308, end: 20110412
  2. RISPERIDONE [Concomitant]
     Dates: start: 20110308, end: 20110322
  3. BENZHEXOL [Concomitant]
     Dates: start: 20110308, end: 20110322

REACTIONS (2)
  - Insomnia [Recovered/Resolved]
  - Restlessness [Recovered/Resolved]
